FAERS Safety Report 14096067 (Version 1)
Quarter: 2017Q4

REPORT INFORMATION
  Report Type: Spontaneous
  Country: US (occurrence: US)
  Receive Date: 20171017
  Receipt Date: 20171017
  Transmission Date: 20180321
  Serious: Yes (Other)
  Sender: FDA-Public Use
  Company Number: US-BRISTOL-MYERS SQUIBB COMPANY-BMS-2017-090579

PATIENT
  Sex: Female
  Weight: 96.61 kg

DRUGS (1)
  1. YERVOY [Suspect]
     Active Substance: IPILIMUMAB
     Indication: METASTATIC MALIGNANT MELANOMA
     Dosage: 3 MG/KG, UNK
     Route: 042
     Dates: start: 20161212, end: 20161230

REACTIONS (5)
  - Colitis [Unknown]
  - Weight increased [Unknown]
  - Addison^s disease [Unknown]
  - Pancreatitis [Unknown]
  - Hypophysitis [Unknown]
